FAERS Safety Report 7364587-1 (Version None)
Quarter: 2011Q1

REPORT INFORMATION
  Report Type: 
  Country: None (occurrence: None)
  Receive Date: 20110321
  Receipt Date: 20110308
  Transmission Date: 20110831
  Serious: Yes (Hospitalization)
  Sender: FDA-Public Use
  Company Number: GXKR2010GB04566

PATIENT
  Age: 73 Year
  Sex: Female

DRUGS (7)
  1. ESOMEPRAZOLE [Suspect]
     Indication: BARRETT'S OESOPHAGUS
     Dosage: 20 MG, QD
     Dates: start: 20080101, end: 20080101
  2. FUROSEMIDE [Concomitant]
     Indication: HYPERTENSION
     Dosage: 20-40 MG
     Dates: start: 20050101
  3. RANITIDINE [Suspect]
  4. OMEPRAZOLE [Suspect]
     Indication: GASTROOESOPHAGEAL REFLUX DISEASE
     Dosage: 20-40 MG DAILY
     Dates: start: 19990101, end: 20080101
  5. PANTOPRAZOLE [Suspect]
     Indication: BARRETT'S OESOPHAGUS
     Dosage: 40 MG, QD
     Route: 048
     Dates: start: 20080101, end: 20080101
  6. LANSOPRAZOLE [Suspect]
     Indication: GASTROOESOPHAGEAL REFLUX DISEASE
     Dosage: UNK
     Dates: start: 19940101, end: 19990101
  7. BENDROFLUMETHIAZIDE [Concomitant]
     Indication: HYPERTENSION
     Dosage: 2.5 MG, QD
     Dates: start: 20010101

REACTIONS (15)
  - FALL [None]
  - ARTHRALGIA [None]
  - HYPOMAGNESAEMIA [None]
  - ABDOMINAL PAIN [None]
  - HYPOCALCAEMIA [None]
  - CHEST PAIN [None]
  - MUSCLE SPASMS [None]
  - LETHARGY [None]
  - TETANY [None]
  - CIRCULATORY COLLAPSE [None]
  - ASTHENIA [None]
  - GAIT DISTURBANCE [None]
  - RASH [None]
  - PARAESTHESIA [None]
  - SYNCOPE [None]
